FAERS Safety Report 5148440-X (Version None)
Quarter: 2006Q4

REPORT INFORMATION
  Report Type: 
  Country: None (occurrence: None)
  Receive Date: 20061110
  Receipt Date: 20060503
  Transmission Date: 20070319
  Serious: Yes (Hospitalization, Other)
  Sender: FDA-Public Use
  Company Number: US-MERCK-0606USA03680

PATIENT
  Age: 50 Year
  Sex: Male
  Weight: 151 kg

DRUGS (40)
  1. ZOCOR [Suspect]
     Route: 048
  2. ZOCOR [Suspect]
     Route: 048
  3. ZOCOR [Suspect]
     Route: 048
     Dates: start: 20050101
  4. ZOCOR [Suspect]
     Route: 048
     Dates: start: 20040301, end: 20040723
  5. ZOCOR [Suspect]
     Route: 048
     Dates: end: 20060823
  6. ZOCOR [Suspect]
     Route: 048
  7. CARBIDOPA AND LEVODOPA [Concomitant]
     Route: 048
  8. LITHIUM CARBONATE [Concomitant]
     Route: 048
  9. LITHIUM CARBONATE [Concomitant]
     Route: 048
  10. LITHIUM CARBONATE [Concomitant]
     Route: 048
  11. MINOCYCLINE [Concomitant]
     Route: 048
  12. OLANZAPINE [Concomitant]
     Route: 048
  13. PRAMIPEXOLE [Concomitant]
     Route: 048
  14. PRAMIPEXOLE [Concomitant]
     Route: 048
  15. PRAMIPEXOLE [Concomitant]
     Route: 048
     Dates: start: 20030827
  16. PROPRANOLOL HYDROCHLORIDE [Concomitant]
     Route: 048
  17. TRIHEXYPHENIDYL HYDROCHLORIDE [Concomitant]
     Route: 048
  18. SELENIUM (UNSPECIFIED) [Concomitant]
     Route: 061
  19. QUETIAPINE FUMARATE [Concomitant]
     Route: 048
     Dates: start: 20021021
  20. HYDROCORTISONE [Concomitant]
     Route: 061
  21. FUROSEMIDE [Concomitant]
     Route: 048
  22. DIVALPROEX SODIUM [Concomitant]
     Route: 048
  23. WELLBUTRIN [Concomitant]
     Route: 048
  24. ACETAMINOPHEN [Concomitant]
     Route: 048
  25. ACETAMINOPHEN [Concomitant]
     Route: 048
  26. VALPROIC ACID [Concomitant]
     Route: 048
  27. VALPROIC ACID [Concomitant]
     Route: 048
  28. VALPROIC ACID [Concomitant]
     Route: 048
  29. RISPERDAL [Concomitant]
     Route: 048
  30. CLONAZEPAM [Concomitant]
     Route: 048
  31. RABEPRAZOLE SODIUM [Concomitant]
     Route: 048
  32. METOPROLOL [Concomitant]
     Route: 048
  33. SYNTHROID [Concomitant]
     Route: 048
  34. SENNA [Concomitant]
     Route: 048
  35. MILK OF MAGNESIA TAB [Concomitant]
     Route: 065
  36. BUPROPION HYDROCHLORIDE [Concomitant]
     Route: 048
  37. TRIHEXYPHENIDYL HYDROCHLORIDE [Concomitant]
     Indication: TREMOR
     Route: 065
  38. GABAPENTIN [Concomitant]
     Indication: NEUROPATHY
     Route: 048
  39. VICODIN [Concomitant]
     Route: 048
  40. LOVENOX [Concomitant]
     Route: 065

REACTIONS (39)
  - ASTERIXIS [None]
  - ASTHENIA [None]
  - BACTERAEMIA [None]
  - CELLULITIS [None]
  - CEREBRAL ATROPHY [None]
  - CHRONIC OBSTRUCTIVE PULMONARY DISEASE [None]
  - CLOSTRIDIUM DIFFICILE COLITIS [None]
  - COLONIC POLYP [None]
  - CONTUSION [None]
  - DECUBITUS ULCER [None]
  - DEEP VEIN THROMBOSIS [None]
  - ENCEPHALOPATHY [None]
  - ENDOCARDITIS [None]
  - FALL [None]
  - GAIT DISTURBANCE [None]
  - HYPOXIA [None]
  - INSOMNIA [None]
  - MENTAL STATUS CHANGES [None]
  - METAL POISONING [None]
  - MUSCLE SPASMS [None]
  - MUSCULAR WEAKNESS [None]
  - MYALGIA [None]
  - NAUSEA [None]
  - NEUROPATHY [None]
  - OEDEMA [None]
  - OSTEOARTHRITIS [None]
  - PARKINSON'S DISEASE [None]
  - PHARYNGITIS STREPTOCOCCAL [None]
  - POLYNEUROPATHY [None]
  - PULMONARY EMBOLISM [None]
  - RASH ERYTHEMATOUS [None]
  - RECTAL HAEMORRHAGE [None]
  - RENAL FAILURE ACUTE [None]
  - RESPIRATORY ACIDOSIS [None]
  - RHABDOMYOLYSIS [None]
  - SEBORRHOEIC DERMATITIS [None]
  - STREPTOCOCCAL INFECTION [None]
  - WEIGHT INCREASED [None]
  - WRONG TECHNIQUE IN DRUG USAGE PROCESS [None]
